FAERS Safety Report 15326941 (Version 2)
Quarter: 2020Q1

REPORT INFORMATION
  Report Type: Spontaneous
  Country: DE (occurrence: DE)
  Receive Date: 20180828
  Receipt Date: 20200127
  Transmission Date: 20200409
  Serious: Yes (Hospitalization)
  Sender: FDA-Public Use
  Company Number: PHHY2017DE204597

PATIENT
  Age: 70 Year
  Sex: Male
  Weight: 57 kg

DRUGS (8)
  1. DEXAMETHASONE. [Suspect]
     Active Substance: DEXAMETHASONE
     Indication: PLASMA CELL MYELOMA
     Dosage: 40 MG, QW
     Route: 065
     Dates: start: 20170130, end: 20170713
  2. INNOHEP [Concomitant]
     Active Substance: TINZAPARIN SODIUM
     Indication: OEDEMA PERIPHERAL
     Dosage: 2000 IU, QD
     Route: 058
     Dates: start: 20170210, end: 20170224
  3. TORASEMID AAA-PHARMA [Concomitant]
     Active Substance: TORSEMIDE
     Indication: OEDEMA PERIPHERAL
     Dosage: 10 MG, QD
     Route: 048
     Dates: start: 20170210, end: 20170223
  4. TORASEMID AAA-PHARMA [Concomitant]
     Active Substance: TORSEMIDE
     Dosage: 10 MG, QD
     Route: 048
     Dates: start: 20170223
  5. REVLIMID [Suspect]
     Active Substance: LENALIDOMIDE
     Indication: PLASMA CELL MYELOMA
     Dosage: 420 MG, 28D
     Route: 048
  6. REVLIMID [Suspect]
     Active Substance: LENALIDOMIDE
     Dosage: 420 MG, UNK ((FOR 28 DAYS ,20 MILLIGRAM)
     Route: 048
     Dates: start: 20170302, end: 20170621
  7. REVLIMID [Suspect]
     Active Substance: LENALIDOMIDE
     Dosage: 525 MG, UNK (FOR 28 DAYS , 25 MILLIGRAM)
     Route: 048
     Dates: start: 20170130, end: 20170219
  8. ASS 1 A PHARMA [Concomitant]
     Active Substance: ASPIRIN
     Indication: PROPHYLAXIS
     Dosage: 100 MG, UNKNOWN
     Route: 048
     Dates: start: 20170124

REACTIONS (3)
  - Infection [Recovered/Resolved]
  - Thrombocytopenia [Not Recovered/Not Resolved]
  - Platelet count decreased [Not Recovered/Not Resolved]

NARRATIVE: CASE EVENT DATE: 20170710
